FAERS Safety Report 14854122 (Version 1)
Quarter: 2018Q2

REPORT INFORMATION
  Report Type: Spontaneous
  Country: US (occurrence: US)
  Receive Date: 20180420
  Receipt Date: 20180420
  Transmission Date: 20180711
  Serious: No
  Sender: FDA-Public Use
  Company Number: None

PATIENT
  Age: 76 Year
  Sex: Female
  Weight: 59.87 kg

DRUGS (17)
  1. VITAMIN B12 [Concomitant]
     Active Substance: CYANOCOBALAMIN
  2. VITAMAX [Concomitant]
  3. HYDROXYCHLOROQUINE [Concomitant]
     Active Substance: HYDROXYCHLOROQUINE
  4. OXYBUTYNIN ER [Concomitant]
     Active Substance: OXYBUTYNIN
  5. E [Concomitant]
  6. CALCIUM [Concomitant]
     Active Substance: CALCIUM
  7. FLONASE [Concomitant]
     Active Substance: FLUTICASONE PROPIONATE
  8. FISH OIL [Concomitant]
     Active Substance: FISH OIL
  9. ESTRADIOL VAGINAL CREAM .017 TEVA [Suspect]
     Active Substance: ESTRADIOL
     Indication: BLOOD OESTROGEN DECREASED
     Dosage: ?          QUANTITY:1 G GRAM(S);?
     Route: 067
     Dates: start: 20180323
  10. METOPROLOL ER SUCCINATE [Concomitant]
     Active Substance: METOPROLOL SUCCINATE
  11. CREON [Concomitant]
     Active Substance: PANCRELIPASE AMYLASE\PANCRELIPASE LIPASE\PANCRELIPASE PROTEASE
  12. CLARITIN [Concomitant]
     Active Substance: LORATADINE
  13. ASOCOL HD [Concomitant]
  14. COLCRYS [Concomitant]
     Active Substance: COLCHICINE
  15. MONTELUKAST [Concomitant]
     Active Substance: MONTELUKAST SODIUM
  16. TRIAMCINOLONE ACETONIDE. [Concomitant]
     Active Substance: TRIAMCINOLONE ACETONIDE
  17. VITAMIN D3 [Concomitant]
     Active Substance: CHOLECALCIFEROL

REACTIONS (3)
  - Headache [None]
  - Vulvovaginal pain [None]
  - Application site pain [None]

NARRATIVE: CASE EVENT DATE: 2018
